APPROVED DRUG PRODUCT: GENOSYL
Active Ingredient: NITRIC OXIDE
Strength: 800PPM
Dosage Form/Route: GAS;INHALATION
Application: N202860 | Product #001
Applicant: VERO BIOTECH INC
Approved: Dec 20, 2019 | RLD: Yes | RS: Yes | Type: RX

PATENTS:
Patent 9604028 | Expires: Aug 13, 2029
Patent 11672938 | Expires: Jul 22, 2040
Patent 7947227 | Expires: Oct 17, 2026
Patent 8057742 | Expires: Jan 18, 2026
Patent 8944049 | Expires: Aug 13, 2029
Patent 10926054 | Expires: Aug 13, 2029
Patent 8607785 | Expires: Jul 14, 2030
Patent 11511252 | Expires: Sep 21, 2029
Patent 7618594 | Expires: Oct 17, 2026
Patent 10737051 | Expires: Oct 20, 2035
Patent 7560076 | Expires: Apr 21, 2027
Patent 11103669 | Expires: Jun 21, 2030
Patent 9701538 | Expires: Jan 28, 2029
Patent 10213572 | Expires: Feb 12, 2036